FAERS Safety Report 7340206-5 (Version None)
Quarter: 2011Q1

REPORT INFORMATION
  Report Type: 
  Country: None (occurrence: None)
  Receive Date: 20110309
  Receipt Date: 20110228
  Transmission Date: 20110831
  Serious: Yes (Hospitalization)
  Sender: FDA-Public Use
  Company Number: US-JNJFOC-20110300676

PATIENT
  Sex: Female

DRUGS (3)
  1. REMICADE [Suspect]
     Dosage: X 3 DOSES INDUCTION
     Route: 042
  2. REMICADE [Suspect]
     Indication: RHEUMATOID ARTHRITIS
     Dosage: X 3 DOSES INDUCTION
     Route: 042
  3. METHOTREXATE [Concomitant]
     Route: 065

REACTIONS (2)
  - URINARY TRACT INFECTION [None]
  - RENAL FAILURE ACUTE [None]
